FAERS Safety Report 17592102 (Version 1)
Quarter: 2020Q1

REPORT INFORMATION
  Report Type: Spontaneous
  Country: US (occurrence: US)
  Receive Date: 20200327
  Receipt Date: 20200327
  Transmission Date: 20200409
  Serious: Yes (Death, Life-Threatening, Hospitalization, Other)
  Sender: FDA-Public Use
  Company Number: US-009507513-2003USA008729

PATIENT
  Age: 16 Year
  Sex: Male
  Weight: 56.2 kg

DRUGS (4)
  1. DECADRON (DEXAMETHASONE SODIUM PHOSPHATE (+) NEOMYCIN SULFATE) [Suspect]
     Active Substance: DEXAMETHASONE SODIUM PHOSPHATE\NEOMYCIN SULFATE
     Dosage: UNK
  2. DECADRON [Suspect]
     Active Substance: DEXAMETHASONE
     Indication: MYALGIA
     Dosage: UNK
     Route: 048
     Dates: start: 2018
  3. ACZ885 [Suspect]
     Active Substance: CANAKINUMAB
     Indication: SICKLE CELL ANAEMIA
     Dosage: CODE NOT BROKEN
     Route: 058
     Dates: start: 20180823, end: 20181126
  4. HYDROXYUREA. [Concomitant]
     Active Substance: HYDROXYUREA
     Dosage: UNK
     Dates: start: 20130129, end: 20181223

REACTIONS (9)
  - Acute chest syndrome [Unknown]
  - Venoocclusive disease [Recovered/Resolved]
  - Chest pain [Recovered/Resolved]
  - Pain [Unknown]
  - Sickle cell anaemia with crisis [Recovered/Resolved]
  - Myalgia [Recovered/Resolved]
  - Neck pain [Unknown]
  - Pain in extremity [Recovering/Resolving]
  - Osteonecrosis [Fatal]

NARRATIVE: CASE EVENT DATE: 20180813
